FAERS Safety Report 23831340 (Version 1)
Quarter: 2024Q2

REPORT INFORMATION
  Report Type: Spontaneous
  Country: US (occurrence: US)
  Receive Date: 20240508
  Receipt Date: 20240508
  Transmission Date: 20240716
  Serious: No
  Sender: FDA-Public Use
  Company Number: US-PFIZER INC-PV202400059356

PATIENT
  Age: 65 Year
  Sex: Female

DRUGS (1)
  1. LITFULO [Suspect]
     Active Substance: RITLECITINIB TOSYLATE
     Dosage: UNK
     Dates: start: 20240401, end: 20240412

REACTIONS (1)
  - Skin discomfort [Unknown]

NARRATIVE: CASE EVENT DATE: 20240401
